FAERS Safety Report 8519494-5 (Version None)
Quarter: 2012Q3

REPORT INFORMATION
  Report Type: 
  Country: None (occurrence: None)
  Receive Date: 20120718
  Receipt Date: 20120711
  Transmission Date: 20120928
  Serious: Yes (Hospitalization)
  Sender: FDA-Public Use
  Company Number: DE-PFIZER INC-2012152758

PATIENT
  Age: 54 Year
  Sex: Male
  Weight: 98 kg

DRUGS (3)
  1. CELEBREX [Suspect]
     Indication: SPINAL OSTEOARTHRITIS
     Dosage: 200 MG DAILY
     Route: 048
     Dates: start: 20120217, end: 20120420
  2. CELEBREX [Suspect]
     Indication: SPINAL DEFORMITY
  3. CELEBREX [Suspect]
     Indication: ARTHRALGIA

REACTIONS (1)
  - ATRIAL FLUTTER [None]
